FAERS Safety Report 16040817 (Version 1)
Quarter: 2019Q1

REPORT INFORMATION
  Report Type: Spontaneous
  Country: US (occurrence: US)
  Receive Date: 20190306
  Receipt Date: 20190306
  Transmission Date: 20190418
  Serious: Yes (Death, Other)
  Sender: FDA-Public Use
  Company Number: US-SA-2019SA060535

PATIENT
  Age: 74 Year
  Sex: Male

DRUGS (1)
  1. GOLD BOND ORIGINAL STRENGTH POWDER [Suspect]
     Active Substance: MENTHOL\ZINC OXIDE

REACTIONS (6)
  - Sepsis [Fatal]
  - Respiratory failure [Fatal]
  - Pneumonia [Fatal]
  - Lung neoplasm malignant [Fatal]
  - Encephalopathy [Unknown]
  - Chronic obstructive pulmonary disease [Unknown]
